FAERS Safety Report 5491909-9 (Version None)
Quarter: 2007Q4

REPORT INFORMATION
  Report Type: 
  Country: None (occurrence: None)
  Receive Date: 20071018
  Receipt Date: 20071018
  Transmission Date: 20080405
  Serious: Yes (Death, Other)
  Sender: FDA-Public Use
  Company Number: None

PATIENT
  Age: 2 Year
  Sex: Female
  Weight: 13.6079 kg

DRUGS (3)
  1. CHILDERN'S TYLENOL  FOR COLD + FLU [Suspect]
     Indication: NASAL CONGESTION
     Dosage: ONE DOSE
  2. CHILDERN'S TYLENOL  FOR COLD + FLU [Suspect]
     Indication: PYREXIA
     Dosage: ONE DOSE
  3. CHILDERN'S TYLENOL  FOR COLD + FLU [Suspect]
     Indication: VIRAL INFECTION
     Dosage: ONE DOSE

REACTIONS (5)
  - BODY TEMPERATURE DECREASED [None]
  - CARDIAC ARREST [None]
  - OVERDOSE [None]
  - RESPIRATORY ARREST [None]
  - VOMITING [None]
